FAERS Safety Report 6563684-8 (Version None)
Quarter: 2010Q1

REPORT INFORMATION
  Report Type: 
  Country: None (occurrence: None)
  Receive Date: 20100130
  Receipt Date: 20091222
  Transmission Date: 20100710
  Serious: No
  Sender: FDA-Public Use
  Company Number: US-ABBOTT-09P-163-0616874-00

PATIENT
  Sex: Male

DRUGS (2)
  1. HUMIRA [Suspect]
     Indication: PSORIASIS
     Dates: start: 20070101
  2. METHOTREXATE [Concomitant]
     Indication: PSORIASIS

REACTIONS (4)
  - CELLULITIS [None]
  - PAIN [None]
  - PSORIASIS [None]
  - SKIN BURNING SENSATION [None]
